FAERS Safety Report 17229217 (Version 1)
Quarter: 2020Q1

REPORT INFORMATION
  Report Type: Report from Study
  Country: US (occurrence: US)
  Receive Date: 20200103
  Receipt Date: 20200103
  Transmission Date: 20200409
  Serious: Yes (Other)
  Sender: FDA-Public Use
  Company Number: US-ROCHE-2491481

PATIENT
  Age: 50 Year
  Sex: Female
  Weight: 136.2 kg

DRUGS (9)
  1. OCREVUS [Suspect]
     Active Substance: OCRELIZUMAB
     Dosage: ONGOING YES
     Route: 042
     Dates: start: 201812
  2. OXYCODONE [Concomitant]
     Active Substance: OXYCODONE
     Indication: BACK PAIN
     Route: 048
  3. DICLOFENAC [Concomitant]
     Active Substance: DICLOFENAC
     Indication: PAIN
     Route: 061
  4. IBUPROFEN. [Concomitant]
     Active Substance: IBUPROFEN
     Indication: PAIN
     Route: 048
  5. LINZESS [Concomitant]
     Active Substance: LINACLOTIDE
     Indication: CONSTIPATION
     Route: 048
  6. OCREVUS [Suspect]
     Active Substance: OCRELIZUMAB
     Indication: RELAPSING-REMITTING MULTIPLE SCLEROSIS
     Dosage: DATE OF MOST RECENT DOSE OF OCRALIZUMAB: 02/DEC/2019
     Route: 042
     Dates: start: 20180604, end: 20180618
  7. CANNABIS SATIVA [Concomitant]
     Active Substance: CANNABIS SATIVA FLOWERING TOP
     Indication: PAIN
  8. MOVANTIK [Concomitant]
     Active Substance: NALOXEGOL OXALATE
     Indication: CONSTIPATION
     Route: 048
  9. OXYCODONE [Concomitant]
     Active Substance: OXYCODONE
     Indication: BACK PAIN
     Route: 048

REACTIONS (7)
  - Arthralgia [Recovered/Resolved]
  - Asthenia [Not Recovered/Not Resolved]
  - Therapeutic product effect decreased [Unknown]
  - Pain [Not Recovered/Not Resolved]
  - Multiple sclerosis relapse [Recovered/Resolved]
  - Balance disorder [Not Recovered/Not Resolved]
  - Pain in extremity [Recovered/Resolved]

NARRATIVE: CASE EVENT DATE: 201809
